FAERS Safety Report 14323925 (Version 2)
Quarter: 2020Q4

REPORT INFORMATION
  Report Type: Report from Study
  Country: US (occurrence: US)
  Receive Date: 20171226
  Receipt Date: 20201026
  Transmission Date: 20210113
  Serious: Yes (Hospitalization)
  Sender: FDA-Public Use
  Company Number: US-ROCHE-1977001

PATIENT
  Age: 74 Year
  Sex: Female
  Weight: 62.7 kg

DRUGS (9)
  1. PACLITAXEL. [Suspect]
     Active Substance: PACLITAXEL
     Dosage: C1 D8?6 MG/ML
     Route: 042
     Dates: start: 20170731
  2. ATEZOLIZUMAB. [Suspect]
     Active Substance: ATEZOLIZUMAB
     Indication: NON-SMALL CELL LUNG CANCER
     Dosage: MOST RECENT DOSE PRIOR TO OF FIRST OCCURRANCE OF FEVER AND FIRST OCCURRANCE OF ACUTE KIDNEY INJURY 2
     Route: 042
     Dates: start: 20170724
  3. CARBOPLATIN. [Suspect]
     Active Substance: CARBOPLATIN
     Indication: NON-SMALL CELL LUNG CANCER
     Dosage: C1 D1?10 MG/ML
     Route: 042
     Dates: start: 20170724
  4. CARBOPLATIN. [Suspect]
     Active Substance: CARBOPLATIN
     Dosage: C1 D15?10 MG/ML
     Route: 042
     Dates: start: 20170807
  5. PACLITAXEL. [Suspect]
     Active Substance: PACLITAXEL
     Indication: NON-SMALL CELL LUNG CANCER
     Dosage: C1 D1?6 MG/ML
     Route: 042
     Dates: start: 20170724
  6. CARBOPLATIN. [Suspect]
     Active Substance: CARBOPLATIN
     Dosage: C1 D8?10 MG/ML
     Route: 042
     Dates: start: 20170731
  7. CARBOPLATIN. [Suspect]
     Active Substance: CARBOPLATIN
     Dosage: C1 D36; MOST RECENT DOSE?10 MG/ML
     Route: 042
     Dates: start: 20170901
  8. PACLITAXEL. [Suspect]
     Active Substance: PACLITAXEL
     Dosage: C1 D36; MOST RECENT DOSE?6 MG/ML
     Route: 042
     Dates: start: 20170901
  9. PACLITAXEL. [Suspect]
     Active Substance: PACLITAXEL
     Dosage: C1 D15?6 MG/ML
     Route: 042
     Dates: start: 20170807

REACTIONS (3)
  - Dehydration [Not Recovered/Not Resolved]
  - Pyrexia [Not Recovered/Not Resolved]
  - Acute kidney injury [Not Recovered/Not Resolved]

NARRATIVE: CASE EVENT DATE: 20170808
